FAERS Safety Report 10432387 (Version 1)
Quarter: 2014Q3

REPORT INFORMATION
  Report Type: Spontaneous
  Country: US (occurrence: None)
  Receive Date: 20140904
  Receipt Date: 20140904
  Transmission Date: 20150326
  Serious: Yes (Life-Threatening)
  Sender: FDA-Public Use
  Company Number: None

PATIENT
  Age: 52 Year
  Sex: Female
  Weight: 99.34 kg

DRUGS (2)
  1. PROAIR HFA [Suspect]
     Active Substance: ALBUTEROL SULFATE
     Indication: BRONCHITIS
     Dosage: 2 PUFFS, TWICE DAILY
     Dates: start: 20140830
  2. PROAIR HFA [Suspect]
     Active Substance: ALBUTEROL SULFATE
     Dosage: 2 PUFFS, TWICE DAILY
     Dates: start: 20140830

REACTIONS (5)
  - Chest discomfort [None]
  - Panic attack [None]
  - Blood pressure increased [None]
  - Anxiety [None]
  - Nervousness [None]

NARRATIVE: CASE EVENT DATE: 20140830
